FAERS Safety Report 8590429-2 (Version None)
Quarter: 2012Q3

REPORT INFORMATION
  Report Type: 
  Country: None (occurrence: None)
  Receive Date: 20120813
  Receipt Date: 20120801
  Transmission Date: 20120928
  Serious: Yes (Disabling)
  Sender: FDA-Public Use
  Company Number: US-009507513-1208USA003690

PATIENT

DRUGS (3)
  1. IMPLANON [Suspect]
     Indication: CONTRACEPTION
     Dosage: 68 MG/3 YEARS
     Route: 059
     Dates: start: 20110914
  2. IMPLANON [Suspect]
     Dosage: 68 MG/3YEARS
     Route: 059
     Dates: start: 20080101
  3. LAMICTAL [Concomitant]
     Indication: PRODUCT USED FOR UNKNOWN INDICATION

REACTIONS (3)
  - DEVICE DIFFICULT TO USE [None]
  - WEIGHT INCREASED [None]
  - DEVICE DISLOCATION [None]
